FAERS Safety Report 6129120-0 (Version None)
Quarter: 2009Q1

REPORT INFORMATION
  Report Type: 
  Country: None (occurrence: None)
  Receive Date: 20090320
  Receipt Date: 20090317
  Transmission Date: 20090719
  Serious: Yes (Hospitalization)
  Sender: FDA-Public Use
  Company Number: GXKR2009DE02341

PATIENT
  Age: 71 Year
  Sex: Male

DRUGS (5)
  1. DIGOXIN [Suspect]
     Dosage: 0.25MG/DAILY
  2. CLARITHROMYCIN [Suspect]
     Indication: HELICOBACTER INFECTION
  3. OMEPRAZOLE [Concomitant]
  4. AMOXICILLIN [Concomitant]
  5. PHENPROCOUMON (PHENPROCOUMON) [Concomitant]

REACTIONS (9)
  - CARDIOACTIVE DRUG LEVEL INCREASED [None]
  - CONCUSSION [None]
  - DIZZINESS [None]
  - DRUG INTERACTION [None]
  - FALL [None]
  - HEADACHE [None]
  - NAUSEA [None]
  - SKIN LACERATION [None]
  - VOMITING [None]
